FAERS Safety Report 22035201 (Version 5)
Quarter: 2023Q1

REPORT INFORMATION
  Report Type: Spontaneous
  Country: FR (occurrence: FR)
  Receive Date: 20230224
  Receipt Date: 20230314
  Transmission Date: 20230417
  Serious: Yes (Life-Threatening)
  Sender: FDA-Public Use
  Company Number: None

PATIENT
  Age: 81 Year
  Sex: Male
  Weight: 80 kg

DRUGS (3)
  1. IMODIUM [Suspect]
     Active Substance: LOPERAMIDE HYDROCHLORIDE
     Indication: Gastroenteritis
     Dosage: 2 MG AT EACH DIARRHEA
     Route: 048
     Dates: start: 20230130, end: 20230202
  2. PHLOROGLUCINOL\1,3,5-TRIMETHOXYBENZENE [Suspect]
     Active Substance: PHLOROGLUCINOL\1,3,5-TRIMETHOXYBENZENE
     Indication: Gastroenteritis
     Dosage: 2 X 3/ PER DAY
     Route: 048
     Dates: start: 20230130, end: 20230202
  3. RACECADOTRIL [Suspect]
     Active Substance: RACECADOTRIL
     Indication: Gastroenteritis
     Dosage: 100 MG X 3 PER DAY
     Route: 048
     Dates: start: 20230130, end: 20230202

REACTIONS (1)
  - Anaphylactic shock [Recovered/Resolved]

NARRATIVE: CASE EVENT DATE: 20230202
